FAERS Safety Report 6166136-2 (Version None)
Quarter: 2009Q2

REPORT INFORMATION
  Report Type: 
  Country: None (occurrence: None)
  Receive Date: 20090422
  Receipt Date: 20090422
  Transmission Date: 20091009
  Serious: Yes (Hospitalization)
  Sender: FDA-Public Use
  Company Number: None

PATIENT
  Sex: Female
  Weight: 64.01 kg

DRUGS (4)
  1. CISPLATIN [Suspect]
     Dosage: 85 MG
  2. DOXORUBICIN HYDROCHLORIDE [Suspect]
     Dosage: 75 MG
  3. TAXOL [Suspect]
     Dosage: 270 MG
  4. NEULASTA [Suspect]
     Dosage: 6 MG

REACTIONS (7)
  - BLOOD CULTURE POSITIVE [None]
  - CULTURE URINE POSITIVE [None]
  - ESCHERICHIA INFECTION [None]
  - FEBRILE NEUTROPENIA [None]
  - SEPTIC SHOCK [None]
  - UNEVALUABLE EVENT [None]
  - WHITE BLOOD CELL COUNT DECREASED [None]
